FAERS Safety Report 20299521 (Version 1)
Quarter: 2022Q1

REPORT INFORMATION
  Report Type: Spontaneous
  Country: US (occurrence: None)
  Receive Date: 20220105
  Receipt Date: 20220105
  Transmission Date: 20220424
  Serious: Yes (Hospitalization)
  Sender: FDA-Public Use
  Company Number: None

PATIENT
  Sex: Male

DRUGS (9)
  1. TACROLIMUS [Suspect]
     Active Substance: TACROLIMUS
     Indication: Renal transplant
     Dosage: FREQUENCY : DAILY;?
     Route: 048
  2. DULOXETINE HYDROCHLORIDE [Concomitant]
     Active Substance: DULOXETINE HYDROCHLORIDE
  3. FUROSEMIDE TAB [Concomitant]
  4. METOPROL SUC TAB [Concomitant]
  5. MYCOPHENOLAT TAB [Concomitant]
  6. MYCOPHENOLATE MOFETIL [Concomitant]
     Active Substance: MYCOPHENOLATE MOFETIL
  7. TACROLIMUS [Concomitant]
     Active Substance: TACROLIMUS
  8. TACROLIMUS [Concomitant]
     Active Substance: TACROLIMUS
  9. TACROLIMUS A [Concomitant]

REACTIONS (1)
  - Myocardial infarction [None]
